FAERS Safety Report 4926893-7 (Version None)
Quarter: 2006Q1

REPORT INFORMATION
  Report Type: 
  Country: None (occurrence: None)
  Receive Date: 20060228
  Receipt Date: 20050713
  Transmission Date: 20060701
  Serious: No
  Sender: FDA-Public Use
  Company Number: US-GLAXOSMITHKLINE-A0566098A

PATIENT
  Age: 22 Year
  Sex: Male

DRUGS (4)
  1. LAMICTAL [Suspect]
     Indication: BIPOLAR DISORDER
     Dosage: 200MG TWICE PER DAY
     Route: 048
     Dates: start: 20050621
  2. AMBIEN [Concomitant]
     Dosage: 10MG AT NIGHT
     Dates: start: 20050607
  3. WELLBUTRIN XL [Concomitant]
     Dosage: 300MG IN THE MORNING
     Route: 048
     Dates: start: 20050215
  4. VALPROIC ACID [Concomitant]
     Dosage: 500MG IN THE MORNING
     Route: 048
     Dates: start: 20010910

REACTIONS (1)
  - RASH [None]
